FAERS Safety Report 6104015-7 (Version None)
Quarter: 2009Q1

REPORT INFORMATION
  Report Type: 
  Country: None (occurrence: None)
  Receive Date: 20090305
  Receipt Date: 20090302
  Transmission Date: 20090719
  Serious: Yes (Other)
  Sender: FDA-Public Use
  Company Number: US-ASTRAZENECA-2006UW13930

PATIENT
  Age: 19472 Day
  Sex: Male
  Weight: 86.2 kg

DRUGS (11)
  1. SEROQUEL [Suspect]
     Indication: SCHIZOPHRENIA
     Route: 048
     Dates: start: 20020101, end: 20040101
  2. ZOCOR [Concomitant]
  3. BENADRYL [Concomitant]
  4. TOPROL-XL [Concomitant]
     Route: 048
  5. ABILIFY [Concomitant]
     Dates: start: 20030101
  6. TRIFLUOPERAZINE [Concomitant]
  7. HALDOL [Concomitant]
     Dates: start: 19860101
  8. NAVANE [Concomitant]
  9. STELAZINE [Concomitant]
  10. LIBRIUM [Concomitant]
     Dates: start: 19840101
  11. ZYPREXA [Concomitant]
     Dosage: 5MG - 15MG
     Dates: start: 20000628, end: 20040101

REACTIONS (7)
  - CHOLECYSTECTOMY [None]
  - DIABETES MELLITUS [None]
  - DYSPNOEA [None]
  - FALL [None]
  - HALLUCINATION [None]
  - INSOMNIA [None]
  - PANCREATITIS ACUTE [None]
